FAERS Safety Report 9770617 (Version 3)
Quarter: 2014Q1

REPORT INFORMATION
  Report Type: Spontaneous
  Country: FR (occurrence: FR)
  Receive Date: 20131218
  Receipt Date: 20140312
  Transmission Date: 20141002
  Serious: Yes (Hospitalization)
  Sender: FDA-Public Use
  Company Number: FR-BAYER-2013-151610

PATIENT
  Age: 18 Year
  Sex: Female
  Weight: 47 kg

DRUGS (12)
  1. GADOVIST [Suspect]
     Indication: HYPOPITUITARISM
     Dosage: 5 ML, ONCE
     Route: 042
     Dates: start: 20130420, end: 20130420
  2. GADOVIST [Suspect]
     Indication: NUCLEAR MAGNETIC RESONANCE IMAGING
     Dosage: 5 ML, ONCE
     Route: 042
     Dates: start: 20131204, end: 20131204
  3. GADOVIST [Suspect]
     Indication: OVARIAN DYSGERMINOMA STAGE UNSPECIFIED
  4. DIFFU K [Suspect]
     Indication: UNEVALUABLE EVENT
     Dosage: 2400 MG, QD
  5. HYDROCORTISONE [Concomitant]
  6. LEVOTHYROX [Concomitant]
     Indication: HYPOPITUITARISM
     Dosage: 65.500 ?G, QD
     Route: 048
     Dates: start: 20070215
  7. MELATONIN [Concomitant]
     Indication: SLEEP DISORDER
     Dosage: 2 MG, QD
     Dates: start: 2010
  8. CLIMASTON [Concomitant]
  9. DIFLUCAN [Concomitant]
  10. VITAMIN D [Concomitant]
     Dosage: 1000 U, UNK
  11. ESTREVA [Concomitant]
     Indication: HYPOPITUITARISM
     Dosage: UNK
     Route: 048
     Dates: start: 20090930, end: 20130904
  12. MINIRIN [Concomitant]
     Indication: HYPOPITUITARISM
     Dosage: 90 ?G, QD
     Route: 048
     Dates: start: 20070215

REACTIONS (2)
  - Pancreatitis acute [Recovered/Resolved]
  - Pancreatitis [Recovered/Resolved]
